FAERS Safety Report 6900487-6 (Version None)
Quarter: 2010Q3

REPORT INFORMATION
  Report Type: 
  Country: None (occurrence: None)
  Receive Date: 20100803
  Receipt Date: 20100722
  Transmission Date: 20110219
  Serious: Yes (Other)
  Sender: FDA-Public Use
  Company Number: DE-PFIZER INC-2010091614

PATIENT
  Sex: Male

DRUGS (2)
  1. VFEND [Suspect]
     Dosage: UNK
  2. SIMVASTATIN [Concomitant]
     Dosage: UNK
     Route: 048

REACTIONS (1)
  - EYELID PTOSIS [None]
